FAERS Safety Report 7943561-8 (Version None)
Quarter: 2011Q4

REPORT INFORMATION
  Report Type: 
  Country: None (occurrence: None)
  Receive Date: 20111128
  Receipt Date: 20111118
  Transmission Date: 20120403
  Serious: Yes (Hospitalization)
  Sender: FDA-Public Use
  Company Number: PHHY2011US101636

PATIENT
  Age: 46 Year
  Sex: Male

DRUGS (1)
  1. PREDNISONE TAB [Suspect]
     Indication: RHEUMATOID ARTHRITIS
     Dosage: 20 MG, UNK

REACTIONS (13)
  - MUSCULAR WEAKNESS [None]
  - CLONUS [None]
  - HYPERREFLEXIA [None]
  - HYPOAESTHESIA [None]
  - URINARY INCONTINENCE [None]
  - EPIDURAL LIPOMATOSIS [None]
  - ASTHENIA [None]
  - EAR CANAL STENOSIS [None]
  - BOWEL MOVEMENT IRREGULARITY [None]
  - CREPITATIONS [None]
  - WHITE BLOOD CELL COUNT INCREASED [None]
  - PARAESTHESIA [None]
  - SENSORY LOSS [None]
